FAERS Safety Report 20008810 (Version 1)
Quarter: 2021Q4

REPORT INFORMATION
  Report Type: Spontaneous
  Country: US (occurrence: US)
  Receive Date: 20211028
  Receipt Date: 20211028
  Transmission Date: 20220303
  Serious: Yes (Life-Threatening, Other)
  Sender: FDA-Public Use
  Company Number: US-NOVARTISTESTPH-NVSC2021US242565

PATIENT

DRUGS (1)
  1. LUTATHERA [Suspect]
     Active Substance: LUTETIUM OXODOTREOTIDE LU-177
     Indication: Neuroblastoma
     Dosage: 7400 MBQ (ONE CYCLE EVERY 8 WEEKS FOR A TOTAL OF 6 CYCLES)
     Route: 042

REACTIONS (1)
  - Thrombocytopenia [Recovering/Resolving]
